FAERS Safety Report 20182883 (Version 1)
Quarter: 2021Q4

REPORT INFORMATION
  Report Type: Spontaneous
  Country: US (occurrence: None)
  Receive Date: 20211214
  Receipt Date: 20211214
  Transmission Date: 20220303
  Serious: No
  Sender: FDA-Public Use
  Company Number: None

PATIENT
  Age: 73 Year
  Sex: Female
  Weight: 62.1 kg

DRUGS (9)
  1. NITROFURANTOIN MONOHYDRATE MACROCRYSTALS [Suspect]
     Active Substance: NITROFURANTOIN\NITROFURANTOIN MONOHYDRATE
     Indication: Cystitis
     Dosage: OTHER QUANTITY : 1 CAPSULE(S);?FREQUENCY : EVERY 12 HOURS;?
     Route: 048
     Dates: start: 20211210, end: 20211213
  2. ELIQUIS [Concomitant]
     Active Substance: APIXABAN
  3. ROSUVASTATIN [Concomitant]
  4. METOPROLOL TARTRATE [Concomitant]
     Active Substance: METOPROLOL TARTRATE
  5. LISINOPRIL [Concomitant]
     Active Substance: LISINOPRIL
  6. SELENIUM [Concomitant]
     Active Substance: SELENIUM
  7. Cardio B (B6, Folate, B12) [Concomitant]
  8. Glutathione cream [Concomitant]
  9. Chelated Magnesium [Concomitant]

REACTIONS (5)
  - Hypoaesthesia [None]
  - Abdominal pain upper [None]
  - Disturbance in attention [None]
  - Decreased appetite [None]
  - Influenza like illness [None]

NARRATIVE: CASE EVENT DATE: 20211211
